FAERS Safety Report 21269590 (Version 1)
Quarter: 2022Q3

REPORT INFORMATION
  Report Type: Spontaneous
  Country: US (occurrence: None)
  Receive Date: 20220829
  Receipt Date: 20220829
  Transmission Date: 20221027
  Serious: Yes (Disabling)
  Sender: FDA-Public Use
  Company Number: None

PATIENT
  Age: 68 Year
  Sex: Female
  Weight: 76.5 kg

DRUGS (8)
  1. SYSTANE ULTRA PRESERVATIVE FREE [Suspect]
     Active Substance: POLYETHYLENE GLYCOL 400\PROPYLENE GLYCOL
     Indication: Dry eye
     Dosage: OTHER QUANTITY : 1 DROP(S);?FREQUENCY : 4 TIMES A DAY;?
     Route: 047
  2. LOSARTAN POTASSIUM [Concomitant]
     Active Substance: LOSARTAN POTASSIUM
  3. Now Brand ultra omega-3 [Concomitant]
  4. Qunol mega CoQ10 Ubiqunol [Concomitant]
  5. Designs for Health multi [Concomitant]
  6. MAGNESIUM GLYCINATE [Concomitant]
     Active Substance: MAGNESIUM GLYCINATE
  7. KRILL OIL [Concomitant]
     Active Substance: DIETARY SUPPLEMENT\KRILL OIL
  8. Viviscal Advanced Hair Health supplement [Concomitant]

REACTIONS (5)
  - Balance disorder [None]
  - Paranasal sinus discomfort [None]
  - Ocular discomfort [None]
  - Allergic reaction to excipient [None]
  - Paranasal sinus haemorrhage [None]

NARRATIVE: CASE EVENT DATE: 20220725
